FAERS Safety Report 8087624 (Version 6)
Quarter: 2012Q4

REPORT INFORMATION
  Report Type: 
  Country: US (occurrence: US)
  Receive Date: 20110812
  Receipt Date: 20121106
  Transmission Date: 20130627
  Serious: Yes (Other)
  Sender: FDA-Public Use
  Company Number: PHEH2011US01222

PATIENT
  Sex: Female

DRUGS (13)
  1. TASIGNA [Suspect]
     Indication: CHRONIC MYELOID LEUKAEMIA
     Dosage: 200 mg, BID
     Route: 048
     Dates: start: 20090106
  2. TASIGNA [Suspect]
     Dosage: 200 mg twice daily alternating with 200 mg once daily
     Route: 048
  3. OMEPRAZOLE [Concomitant]
     Dosage: UNK UKN, UNK
  4. POTASSIUM [Concomitant]
     Dosage: UNK UKN, UNK
  5. CRESTOR [Concomitant]
     Dosage: UNK UKN, UNK
  6. FUROSEMIDE [Concomitant]
     Dosage: UNK UKN, UNK
  7. METOPROLOL [Concomitant]
     Dosage: UNK UKN, UNK
  8. CEFPROZIL [Concomitant]
     Dosage: UNK UKN, UNK
  9. BONIVA [Concomitant]
     Dosage: UNK UKN, UNK
  10. PLAVIX [Concomitant]
     Dosage: UNK UKN, UNK
  11. TOPROL XL [Concomitant]
  12. COQ10 [Concomitant]
  13. FISH OIL [Concomitant]

REACTIONS (5)
  - Pleural effusion [Recovering/Resolving]
  - Dyspnoea [Recovering/Resolving]
  - Weight increased [Not Recovered/Not Resolved]
  - Pain in extremity [Recovering/Resolving]
  - Intermittent claudication [Recovering/Resolving]
